FAERS Safety Report 11008662 (Version 1)
Quarter: 2015Q2

REPORT INFORMATION
  Report Type: Spontaneous
  Country: US (occurrence: None)
  Receive Date: 20150409
  Receipt Date: 20150409
  Transmission Date: 20150821
  Serious: Yes (Hospitalization)
  Sender: FDA-Public Use
  Company Number: None

PATIENT
  Age: 62 Year
  Sex: Female

DRUGS (13)
  1. RANITIDINE [Concomitant]
     Active Substance: RANITIDINE\RANITIDINE HYDROCHLORIDE
  2. FENTANYL. [Concomitant]
     Active Substance: FENTANYL
  3. NEXAVAR [Suspect]
     Active Substance: SORAFENIB
     Indication: HEPATIC CANCER
     Dosage: 2 TABS (400MG) BID ORAL
     Route: 048
     Dates: start: 20150318
  4. LACTULOSE. [Concomitant]
     Active Substance: LACTULOSE
  5. LORTAB [Concomitant]
     Active Substance: ACETAMINOPHEN\HYDROCODONE BITARTRATE
  6. ATELVIA [Concomitant]
     Active Substance: RISEDRONATE SODIUM
  7. REMERON [Concomitant]
     Active Substance: MIRTAZAPINE
  8. ALPRAZOLAM. [Concomitant]
     Active Substance: ALPRAZOLAM
  9. CARBIDOPA. [Concomitant]
     Active Substance: CARBIDOPA
  10. LYRICA [Concomitant]
     Active Substance: PREGABALIN
  11. NUEDEXTA [Concomitant]
     Active Substance: DEXTROMETHORPHAN HYDROBROMIDE\QUINIDINE SULFATE
  12. VITAMIN D3 [Concomitant]
     Active Substance: CHOLECALCIFEROL
  13. ZONISAMIDE. [Concomitant]
     Active Substance: ZONISAMIDE

REACTIONS (4)
  - Confusional state [None]
  - Epistaxis [None]
  - Memory impairment [None]
  - Quality of life decreased [None]

NARRATIVE: CASE EVENT DATE: 20150323
